FAERS Safety Report 7519279-2 (Version None)
Quarter: 2011Q2

REPORT INFORMATION
  Report Type: 
  Country: None (occurrence: None)
  Receive Date: 20110523
  Receipt Date: 20110513
  Transmission Date: 20111010
  Serious: Yes (Other)
  Sender: FDA-Public Use
  Company Number: 2011SP022073

PATIENT
  Age: 72 Year
  Sex: Female

DRUGS (1)
  1. DULERA TABLET [Suspect]
     Indication: PRODUCT USED FOR UNKNOWN INDICATION
     Dosage: BID, INH
     Route: 055
     Dates: start: 20110501

REACTIONS (3)
  - SWOLLEN TONGUE [None]
  - TONGUE DISORDER [None]
  - PARAESTHESIA ORAL [None]
